FAERS Safety Report 8436903-0 (Version None)
Quarter: 2012Q2

REPORT INFORMATION
  Report Type: 
  Country: None (occurrence: None)
  Receive Date: 20120614
  Receipt Date: 20120606
  Transmission Date: 20120825
  Serious: Yes (Other)
  Sender: FDA-Public Use
  Company Number: US-AMGEN-USASP2012033732

PATIENT
  Age: 82 Year
  Sex: Male

DRUGS (8)
  1. ASPIRIN [Concomitant]
     Dosage: UNK
  2. PROCRIT [Suspect]
     Indication: NEPHROGENIC ANAEMIA
     Dosage: 15000 IU, UNK
     Dates: start: 20080101
  3. FISH OIL [Concomitant]
     Dosage: UNK
  4. PREDNISONE TAB [Concomitant]
     Dosage: UNK
     Dates: start: 20120525
  5. PROCRIT [Suspect]
     Dosage: 30000 IU, QWK
     Route: 058
     Dates: start: 20120502, end: 20120516
  6. FLOMAX [Concomitant]
     Dosage: UNK
  7. PROCRIT [Suspect]
     Dosage: 20000 IU, QWK
     Route: 058
     Dates: start: 20120418, end: 20120425
  8. LIPITOR [Concomitant]
     Dosage: UNK

REACTIONS (3)
  - WARM TYPE HAEMOLYTIC ANAEMIA [None]
  - THERAPEUTIC RESPONSE DECREASED [None]
  - HIV TEST POSITIVE [None]
